FAERS Safety Report 9866852 (Version 7)
Quarter: 2015Q1

REPORT INFORMATION
  Report Type: Report from Study
  Country: CA (occurrence: CA)
  Receive Date: 20140204
  Receipt Date: 20150311
  Transmission Date: 20150721
  Serious: Yes (Other)
  Sender: FDA-Public Use
  Company Number: CA-AMGEN-CANSP2013019818

PATIENT
  Age: 87 Year
  Sex: Female
  Weight: 86.36 kg

DRUGS (7)
  1. VITAMIN B12 [Concomitant]
     Active Substance: CYANOCOBALAMIN
     Dosage: UNK UNK, Q3WK
  2. CALCIUM [Concomitant]
     Active Substance: CALCIUM
     Dosage: UNK
  3. ELIQUIS [Concomitant]
     Active Substance: APIXABAN
     Dosage: 2 MG, BID
     Dates: start: 2013
  4. BISOPROLOL [Concomitant]
     Active Substance: BISOPROLOL
     Dosage: UNK
  5. PROLIA [Suspect]
     Active Substance: DENOSUMAB
     Indication: OSTEOPOROSIS POSTMENOPAUSAL
     Dosage: 60 MG, Q6MO
     Route: 058
     Dates: start: 20130305
  6. VITAMIN D                          /00107901/ [Concomitant]
     Active Substance: ERGOCALCIFEROL
     Dosage: UNK
  7. TIAZEM [Concomitant]
     Indication: BLOOD PRESSURE
     Dosage: 120 MG, UNK

REACTIONS (15)
  - Pruritus [Unknown]
  - Arthralgia [Not Recovered/Not Resolved]
  - Back pain [Unknown]
  - Dysgeusia [Unknown]
  - Peripheral swelling [Unknown]
  - Ageusia [Unknown]
  - Parosmia [Unknown]
  - Bone pain [Unknown]
  - Dry skin [Unknown]
  - Neoplasm progression [Not Recovered/Not Resolved]
  - Skin irritation [Unknown]
  - Skin sensitisation [Unknown]
  - Arrhythmia [Unknown]
  - Joint stiffness [Unknown]
  - Nerve compression [Unknown]

NARRATIVE: CASE EVENT DATE: 2015
